FAERS Safety Report 20967933 (Version 1)
Quarter: 2022Q2

REPORT INFORMATION
  Report Type: Report from Study
  Country: DE (occurrence: DE)
  Receive Date: 20220616
  Receipt Date: 20220616
  Transmission Date: 20220721
  Serious: Yes (Other)
  Sender: FDA-Public Use
  Company Number: DE-NOVARTISPH-NVSC2021DE236880

PATIENT
  Sex: Male

DRUGS (6)
  1. BEOVU [Suspect]
     Active Substance: BROLUCIZUMAB-DBLL
     Indication: Neovascular age-related macular degeneration
     Dosage: 0.05 ML (= 6 MG BROLUCIZUMAB), ONCE/SINGLE (LEFT EYE), STRENGTH: 120MG/ML
     Route: 031
     Dates: start: 20210119, end: 20210119
  2. BEOVU [Suspect]
     Active Substance: BROLUCIZUMAB-DBLL
     Dosage: 0.05 ML (= 6 MG BROLUCIZUMAB), ONCE/SINGLE (LEFT EYE), STRENGTH: 120MG/ML
     Route: 031
     Dates: start: 20210217, end: 20210217
  3. BEOVU [Suspect]
     Active Substance: BROLUCIZUMAB-DBLL
     Dosage: 0.05 ML (= 6 MG BROLUCIZUMAB), ONCE/SINGLE (LEFT EYE), STRENGTH: 120MG/ML
     Route: 031
     Dates: start: 20210317, end: 20210317
  4. BEOVU [Suspect]
     Active Substance: BROLUCIZUMAB-DBLL
     Dosage: 0.05 ML (= 6 MG BROLUCIZUMAB), ONCE/SINGLE (LEFT EYE), STRENGTH: 120MG/ML
     Route: 031
     Dates: start: 20210719, end: 20210719
  5. BEOVU [Suspect]
     Active Substance: BROLUCIZUMAB-DBLL
     Dosage: 0.05 ML (= 6 MG BROLUCIZUMAB), ONCE/SINGLE (LEFT EYE), STRENGTH: 120MG/ML
     Route: 031
     Dates: start: 20211111, end: 20211111
  6. BEOVU [Suspect]
     Active Substance: BROLUCIZUMAB-DBLL
     Dosage: 0.05 ML (= 6 MG BROLUCIZUMAB), ONCE/SINGLE (LEFT EYE), STRENGTH: 120MG/ML
     Route: 031
     Dates: start: 20220328

REACTIONS (9)
  - Cataract [Recovered/Resolved]
  - Lenticular opacities [Recovered/Resolved]
  - Posterior capsule opacification [Recovered/Resolved]
  - Cataract [Not Recovered/Not Resolved]
  - Anterior chamber cell [Recovered/Resolved]
  - Vitreal cells [Recovered/Resolved]
  - Corneal disorder [Recovered/Resolved]
  - Conjunctival hyperaemia [Recovered/Resolved]
  - Anterior chamber cell [Recovered/Resolved]

NARRATIVE: CASE EVENT DATE: 20210719
